FAERS Safety Report 8113646-4 (Version None)
Quarter: 2012Q1

REPORT INFORMATION
  Report Type: 
  Country: None (occurrence: None)
  Receive Date: 20120203
  Receipt Date: 20120131
  Transmission Date: 20120608
  Serious: Yes (Death, Hospitalization)
  Sender: FDA-Public Use
  Company Number: IL-PFIZER INC-2012027005

PATIENT
  Age: 50 Year
  Sex: Male

DRUGS (4)
  1. LYRICA [Suspect]
     Dosage: 150 MG, 2X/DAY
  2. AMITRIPTYLINE HCL [Suspect]
     Dosage: UNK
  3. AFINITOR [Suspect]
     Dosage: 10 MG, 1X/DAY
  4. METFORMIN HCL [Suspect]
     Dosage: 850 MG, 2X/DAY

REACTIONS (1)
  - PNEUMONITIS [None]
